FAERS Safety Report 5218856-1 (Version None)
Quarter: 2007Q1

REPORT INFORMATION
  Report Type: 
  Country: None (occurrence: None)
  Receive Date: 20070125
  Receipt Date: 20070115
  Transmission Date: 20070707
  Serious: Yes (Other)
  Sender: FDA-Public Use
  Company Number: US-JNJFOC-20070104557

PATIENT
  Sex: Male
  Weight: 77.11 kg

DRUGS (14)
  1. FENTANYL TRANSDERMAL SYSTEM [Suspect]
     Route: 062
  2. FENTANYL TRANSDERMAL SYSTEM [Suspect]
     Route: 062
  3. FENTANYL TRANSDERMAL SYSTEM [Suspect]
     Route: 062
  4. FENTANYL TRANSDERMAL SYSTEM [Suspect]
     Indication: ARTHRALGIA
     Route: 062
  5. VICODIN [Concomitant]
     Indication: PAIN
     Dosage: 5/500MG, 3 IN 1 DAY OR AS NEEDED
     Route: 048
  6. CLONAZEPAM [Concomitant]
     Indication: PAIN
     Route: 048
  7. POTASSIUM ACETATE [Concomitant]
     Indication: DRUG USE FOR UNKNOWN INDICATION
     Route: 048
  8. LASIX [Concomitant]
     Indication: DRUG USE FOR UNKNOWN INDICATION
     Route: 048
  9. NEURONTIN [Concomitant]
     Indication: CONVULSION
     Route: 048
  10. NEXIUM [Concomitant]
     Indication: DRUG USE FOR UNKNOWN INDICATION
     Route: 048
  11. IBUPROFEN [Concomitant]
     Indication: PAIN
     Route: 048
  12. DILANTIN [Concomitant]
     Dosage: ON TUESDAY, THURSDAY, SATURDAY
     Route: 048
  13. DILANTIN [Concomitant]
     Indication: CONVULSION
     Dosage: ON MONDAY, WEDNESDAY, FRIDAY, SUNDAY
     Route: 048
  14. PHENOBARBITAL TAB [Concomitant]
     Indication: CONVULSION
     Route: 048

REACTIONS (5)
  - COGNITIVE DISORDER [None]
  - DEPENDENCE [None]
  - DRUG INEFFECTIVE [None]
  - NAUSEA [None]
  - TREMOR [None]
